FAERS Safety Report 21672288 (Version 1)
Quarter: 2022Q4

REPORT INFORMATION
  Report Type: Report from Study
  Country: US (occurrence: US)
  Receive Date: 20221202
  Receipt Date: 20221202
  Transmission Date: 20230112
  Serious: No
  Sender: FDA-Public Use
  Company Number: US-ZOGENIX INTERNATIONAL LIMITED-ZX008-2017-00111

PATIENT
  Age: 3 Year
  Sex: Male
  Weight: 15 kg

DRUGS (9)
  1. FENFLURAMINE HYDROCHLORIDE [Suspect]
     Active Substance: FENFLURAMINE HYDROCHLORIDE
     Indication: Severe myoclonic epilepsy of infancy
     Dosage: UNK
     Route: 048
     Dates: start: 20161214
  2. FENFLURAMINE HYDROCHLORIDE [Suspect]
     Active Substance: FENFLURAMINE HYDROCHLORIDE
     Indication: Severe myoclonic epilepsy of infancy
     Dosage: UNK
     Route: 048
     Dates: start: 20161214
  3. FENFLURAMINE HYDROCHLORIDE [Suspect]
     Active Substance: FENFLURAMINE HYDROCHLORIDE
     Indication: Severe myoclonic epilepsy of infancy
     Dosage: UNK
     Route: 048
     Dates: start: 20161214
  4. PLACEBO [Suspect]
     Active Substance: UNSPECIFIED INGREDIENT
     Indication: Severe myoclonic epilepsy of infancy
     Dosage: UNK
     Route: 048
     Dates: start: 20161214
  5. VITAMIN D [Concomitant]
     Active Substance: VITAMIN D NOS
     Indication: Nutritional supplementation
     Dosage: 200 IU, BID
     Route: 048
     Dates: start: 2015
  6. HERBALS [Concomitant]
     Active Substance: HERBALS
     Indication: Nutritional supplementation
     Dosage: .5 IU, BID
     Route: 048
     Dates: start: 2015
  7. LIDOCAINE [Concomitant]
     Active Substance: LIDOCAINE
     Indication: Prophylaxis
     Dosage: 1 IU, PRN
     Route: 062
     Dates: start: 20161102
  8. ONFI [Concomitant]
     Active Substance: CLOBAZAM
     Indication: Epilepsy
     Dosage: 15 MG MILLIGRAM(S), BID
     Route: 048
     Dates: start: 201604
  9. DIASTAT [Concomitant]
     Active Substance: DIAZEPAM
     Indication: Epilepsy
     Dosage: 7.5 MG MILLIGRAM(S), UNK
     Route: 054

REACTIONS (1)
  - Echocardiogram abnormal [Recovered/Resolved]

NARRATIVE: CASE EVENT DATE: 20170322
